FAERS Safety Report 6756363-5 (Version None)
Quarter: 2010Q2

REPORT INFORMATION
  Report Type: 
  Country: None (occurrence: None)
  Receive Date: 20100604
  Receipt Date: 20100528
  Transmission Date: 20101027
  Serious: Yes (Death, Congenital Anomaly)
  Sender: FDA-Public Use
  Company Number: US-GILEAD-2010-0029162

PATIENT
  Sex: Male
  Weight: 0.554 kg

DRUGS (4)
  1. TRUVADA [Suspect]
     Indication: PROPHYLAXIS AGAINST HIV INFECTION
     Route: 064
     Dates: start: 20100322
  2. DARUNAVIR [Concomitant]
     Indication: PROPHYLAXIS AGAINST HIV INFECTION
  3. RALTEGRAVIR [Concomitant]
     Indication: PROPHYLAXIS AGAINST HIV INFECTION
  4. RITONAVIR [Concomitant]
     Indication: PROPHYLAXIS AGAINST HIV INFECTION

REACTIONS (5)
  - CONGENITAL AORTIC ANOMALY [None]
  - DEATH [None]
  - PULMONARY HYPOPLASIA [None]
  - ULTRASOUND ANTENATAL SCREEN ABNORMAL [None]
  - VENTRICULAR SEPTAL DEFECT [None]
